FAERS Safety Report 16005397 (Version 3)
Quarter: 2020Q1

REPORT INFORMATION
  Report Type: Spontaneous
  Country: FR (occurrence: FR)
  Receive Date: 20190226
  Receipt Date: 20200305
  Transmission Date: 20200409
  Serious: Yes (Other)
  Sender: FDA-Public Use
  Company Number: FR-EMD SERONO-E2B_90066473

PATIENT
  Age: 13 Year
  Sex: Male
  Weight: 32 kg

DRUGS (3)
  1. SAIZEN [Suspect]
     Active Substance: SOMATROPIN
     Indication: GROWTH RETARDATION
     Dosage: 8.7 MG PER WEEK
     Route: 058
     Dates: start: 2015, end: 201902
  2. SAIZEN [Suspect]
     Active Substance: SOMATROPIN
     Dosage: DOSE REINTRODUCED 8.7 MG PER WEEK
     Route: 058
     Dates: start: 201907
  3. SAIZEN [Suspect]
     Active Substance: SOMATROPIN
     Dosage: DOSE INCREASED
     Route: 058

REACTIONS (2)
  - Blood creatine phosphokinase increased [Recovered/Resolved]
  - Blood creatine phosphokinase increased [Not Recovered/Not Resolved]

NARRATIVE: CASE EVENT DATE: 201812
